FAERS Safety Report 13466291 (Version 1)
Quarter: 2017Q2

REPORT INFORMATION
  Report Type: Spontaneous
  Country: US (occurrence: US)
  Receive Date: 20170421
  Receipt Date: 20170421
  Transmission Date: 20170830
  Serious: Yes (Other)
  Sender: FDA-Public Use
  Company Number: None

PATIENT
  Age: 61 Year
  Sex: Male

DRUGS (2)
  1. CLOTRIMAZOLE CREAM [Suspect]
     Active Substance: CLOTRIMAZOLE
  2. FLUROURACIL TOPICAL 5 (FU5) [Suspect]
     Active Substance: FLUOROURACIL
     Route: 061
     Dates: start: 20170402, end: 20170404

REACTIONS (8)
  - Ulcer [None]
  - Injury [None]
  - Scrotal haematocoele [None]
  - Penile haemorrhage [None]
  - Pain [None]
  - Product packaging confusion [None]
  - Drug administered at inappropriate site [None]
  - Skin disorder [None]

NARRATIVE: CASE EVENT DATE: 20170404
